FAERS Safety Report 6155439-3 (Version None)
Quarter: 2009Q2

REPORT INFORMATION
  Report Type: 
  Country: None (occurrence: None)
  Receive Date: 20090415
  Receipt Date: 20090407
  Transmission Date: 20091009
  Serious: No
  Sender: FDA-Public Use
  Company Number: US-EISAI MEDIAL RESEARCH-E7273-00062-SPO-US

PATIENT
  Age: 48 Year
  Sex: Male

DRUGS (2)
  1. TARGRETIN [Suspect]
     Indication: ADULT T-CELL LYMPHOMA/LEUKAEMIA
     Route: 048
  2. INTERFERON [Concomitant]
     Dosage: 1.5 MILLION UNITS
     Route: 058

REACTIONS (3)
  - DEHYDRATION [None]
  - HYPERCALCAEMIA [None]
  - SEPSIS [None]
